FAERS Safety Report 8761736 (Version 2)
Quarter: 2012Q4

REPORT INFORMATION
  Report Type: Spontaneous
  Country: JP (occurrence: None)
  Receive Date: 20120822
  Receipt Date: 20120920
  Transmission Date: 20130627
  Serious: Yes (Death, Life-Threatening)
  Sender: FDA-Public Use
  Company Number: JP-2012-15998

PATIENT
  Age: 92 Year
  Sex: Male

DRUGS (2)
  1. PLETAAL [Suspect]
     Route: 048
     Dates: start: 20120707, end: 20120808
  2. ALDACTONE A (SPIRONOLACTONE) [Concomitant]

REACTIONS (4)
  - Subdural haematoma [None]
  - Cerebral haemorrhage [None]
  - Fall [None]
  - Contusion [None]
